FAERS Safety Report 12519725 (Version 3)
Quarter: 2016Q3

REPORT INFORMATION
  Report Type: Report from Study
  Country: CA (occurrence: CA)
  Receive Date: 20160630
  Receipt Date: 20160913
  Transmission Date: 20161109
  Serious: Yes (Other)
  Sender: FDA-Public Use
  Company Number: CA-JNJFOC-20160626295

PATIENT
  Age: 59 Year
  Sex: Female
  Weight: 103.7 kg

DRUGS (4)
  1. REMICADE [Suspect]
     Active Substance: INFLIXIMAB
     Indication: RHEUMATOID ARTHRITIS
     Route: 042
     Dates: start: 20140701
  2. REMICADE [Suspect]
     Active Substance: INFLIXIMAB
     Indication: RHEUMATOID ARTHRITIS
     Route: 042
     Dates: start: 20140731
  3. REMICADE [Suspect]
     Active Substance: INFLIXIMAB
     Indication: RHEUMATOID ARTHRITIS
     Route: 042
     Dates: start: 2016
  4. REMICADE [Suspect]
     Active Substance: INFLIXIMAB
     Indication: RHEUMATOID ARTHRITIS
     Route: 042
     Dates: start: 20140718

REACTIONS (8)
  - Haemoglobin decreased [Unknown]
  - Off label use [Unknown]
  - Blood iron decreased [Unknown]
  - Migraine [Unknown]
  - Product use issue [Unknown]
  - Cellulitis [Unknown]
  - Lower respiratory tract infection [Unknown]
  - Nerve injury [Unknown]

NARRATIVE: CASE EVENT DATE: 20140701
